FAERS Safety Report 8928613 (Version 2)
Quarter: 2013Q2

REPORT INFORMATION
  Report Type: Spontaneous
  Country: FR (occurrence: IT)
  Receive Date: 20121128
  Receipt Date: 20130528
  Transmission Date: 20140414
  Serious: Yes (Death)
  Sender: FDA-Public Use
  Company Number: FR-OTSUKA-US-2012-11701

PATIENT
  Age: 10 Year
  Sex: Female

DRUGS (9)
  1. BUSULFEX [Suspect]
     Indication: EWING^S SARCOMA METASTATIC
     Dosage: 1 MG/KG, QID
     Route: 048
  2. BUSULFEX [Suspect]
     Indication: BONE MARROW CONDITIONING REGIMEN
  3. MELPHALAN [Concomitant]
  4. VINCRISTINE [Concomitant]
  5. DOXORUBICIN [Concomitant]
  6. IFOSFAMIDE [Concomitant]
  7. CYCLOPHOSPHAMIDE [Concomitant]
  8. ETOPOSIDE [Concomitant]
  9. G-CSF [Concomitant]

REACTIONS (2)
  - Acute myeloid leukaemia [Fatal]
  - Acute myeloid leukaemia [Fatal]
